FAERS Safety Report 7284892-7 (Version None)
Quarter: 2011Q1

REPORT INFORMATION
  Report Type: 
  Country: None (occurrence: None)
  Receive Date: 20110204
  Receipt Date: 20110204
  Transmission Date: 20110831
  Serious: Yes (Death, Hospitalization)
  Sender: FDA-Public Use
  Company Number: None

PATIENT
  Age: 70 Year
  Sex: Female
  Weight: 65.1 kg

DRUGS (20)
  1. EFFEXOR XR [Concomitant]
  2. ANTIVERT [Concomitant]
  3. FLEXERIL [Concomitant]
  4. ALLEGRA [Concomitant]
  5. PHOSPHO-NEUTRAL [Concomitant]
  6. WARFARIN SODIUM [Concomitant]
  7. VANDETANIB 100 MG ASTRA ZENECA [Suspect]
     Indication: NEOPLASM RECURRENCE
     Dosage: 100 MG QD ORAL
     Route: 048
     Dates: start: 20100604, end: 20100610
  8. VANDETANIB 100 MG ASTRA ZENECA [Suspect]
     Indication: GLIOBLASTOMA MULTIFORME
     Dosage: 100 MG QD ORAL
     Route: 048
     Dates: start: 20100604, end: 20100610
  9. VANDETANIB 100 MG ASTRA ZENECA [Suspect]
     Indication: NEOPLASM RECURRENCE
     Dosage: 100 MG QD ORAL
     Route: 048
     Dates: start: 20100615, end: 20100624
  10. VANDETANIB 100 MG ASTRA ZENECA [Suspect]
     Indication: GLIOBLASTOMA MULTIFORME
     Dosage: 100 MG QD ORAL
     Route: 048
     Dates: start: 20100615, end: 20100624
  11. MEPRON [Concomitant]
  12. ULTRAM [Concomitant]
  13. DECADRON [Concomitant]
  14. KEPPRA [Concomitant]
  15. OMEPRAZOLE [Concomitant]
  16. SIROLIMUS [Suspect]
     Indication: GLIOBLASTOMA MULTIFORME
     Dosage: 2 MG QD ORAL
     Route: 048
     Dates: start: 20100604, end: 20100610
  17. SIROLIMUS [Suspect]
     Indication: NEOPLASM RECURRENCE
     Dosage: 2 MG QD ORAL
     Route: 048
     Dates: start: 20100604, end: 20100610
  18. SIROLIMUS [Suspect]
     Indication: GLIOBLASTOMA MULTIFORME
     Dosage: 2 MG QD ORAL
     Route: 048
     Dates: start: 20100615, end: 20100621
  19. SIROLIMUS [Suspect]
     Indication: NEOPLASM RECURRENCE
     Dosage: 2 MG QD ORAL
     Route: 048
     Dates: start: 20100615, end: 20100621
  20. LORAZEPAM [Concomitant]

REACTIONS (9)
  - INCONTINENCE [None]
  - ASTHENIA [None]
  - ABASIA [None]
  - WHITE BLOOD CELL COUNT ABNORMAL [None]
  - NEUTROPENIA [None]
  - AMNESIA [None]
  - FATIGUE [None]
  - CONFUSIONAL STATE [None]
  - THROMBOCYTOPENIA [None]
